FAERS Safety Report 5776488-0 (Version None)
Quarter: 2008Q2

REPORT INFORMATION
  Report Type: 
  Country: None (occurrence: None)
  Receive Date: 20080617
  Receipt Date: 20080617
  Transmission Date: 20081010
  Serious: No
  Sender: FDA-Public Use
  Company Number: None

PATIENT
  Age: 67 Year
  Sex: Female

DRUGS (16)
  1. CITALOPRAM HYDROBROMIDE [Suspect]
     Dosage: CITALOPRAM 20MG DAILY ORAL
     Route: 048
     Dates: start: 20080613
  2. CITALOPRAM HYDROBROMIDE [Suspect]
     Dosage: CITALOPRAM 20MG DAILY ORAL
     Route: 048
     Dates: start: 20080614
  3. KLOR-CON [Concomitant]
  4. ASPIRIN [Concomitant]
  5. DIOVAN [Concomitant]
  6. LANOXIN [Concomitant]
  7. LIPITOR [Concomitant]
  8. GEMFIBROZIL [Concomitant]
  9. VICODIN [Concomitant]
  10. WARFARIN SODIUM [Concomitant]
  11. LASIX [Concomitant]
  12. OMEPRAZOLE [Concomitant]
  13. LISINOPRIL AND HYDROCHLOROTHIAZIDE [Concomitant]
  14. DILTIAZEM HCL [Concomitant]
  15. FISH OIL [Concomitant]
  16. CLARIT [Concomitant]

REACTIONS (5)
  - BURNING SENSATION [None]
  - DRY MOUTH [None]
  - HOT FLUSH [None]
  - HYPOAESTHESIA ORAL [None]
  - NAUSEA [None]
